FAERS Safety Report 7480060-4 (Version None)
Quarter: 2011Q2

REPORT INFORMATION
  Report Type: 
  Country: None (occurrence: None)
  Receive Date: 20110516
  Receipt Date: 20110506
  Transmission Date: 20111010
  Serious: No
  Sender: FDA-Public Use
  Company Number: US-BIOGENIDEC-2011BI008118

PATIENT
  Sex: Female

DRUGS (1)
  1. TYSABRI [Suspect]
     Indication: MULTIPLE SCLEROSIS
     Route: 042
     Dates: start: 20091207

REACTIONS (6)
  - BLADDER SPASM [None]
  - ASTHENIA [None]
  - INFLUENZA [None]
  - FATIGUE [None]
  - BLADDER DISORDER [None]
  - MUSCULAR WEAKNESS [None]
